FAERS Safety Report 14578174 (Version 3)
Quarter: 2018Q2

REPORT INFORMATION
  Report Type: Spontaneous
  Country: US (occurrence: US)
  Receive Date: 20180227
  Receipt Date: 20180425
  Transmission Date: 20180711
  Serious: Yes (Hospitalization)
  Sender: FDA-Public Use
  Company Number: US-TAIHO ONCOLOGY INC-EU-2018-00110

PATIENT
  Age: 82 Year
  Sex: Male

DRUGS (7)
  1. COUMADIN [Suspect]
     Active Substance: WARFARIN SODIUM
     Dosage: NI
  2. LONSURF [Suspect]
     Active Substance: TIPIRACIL HYDROCHLORIDE\TRIFLURIDINE
     Route: 048
     Dates: start: 201701
  3. IRON [Concomitant]
     Active Substance: IRON
     Dosage: NI
  4. LISINOPRIL. [Concomitant]
     Active Substance: LISINOPRIL
     Dosage: NI
  5. GLIBENCLAMIDE [Concomitant]
     Active Substance: GLYBURIDE
     Dosage: NI
  6. METFORMIN [Concomitant]
     Active Substance: METFORMIN HYDROCHLORIDE
     Dosage: NI
  7. TAMSULOSIN [Concomitant]
     Active Substance: TAMSULOSIN
     Dosage: NI

REACTIONS (2)
  - Syncope [Recovered/Resolved]
  - Anaemia [Not Recovered/Not Resolved]

NARRATIVE: CASE EVENT DATE: 20170413
